FAERS Safety Report 9097194 (Version 1)
Quarter: 2013Q1

REPORT INFORMATION
  Report Type: Other
  Country: US (occurrence: US)
  Receive Date: 20130212
  Receipt Date: 20130212
  Transmission Date: 20140127
  Serious: Yes (Death, Hospitalization)
  Sender: FDA-Public Use
  Company Number: US-SHIRE-ALL1-2013-00813

PATIENT
  Sex: Male

DRUGS (1)
  1. FOSRENOL [Suspect]
     Indication: HYPERPHOSPHATAEMIA
     Dosage: UNK, UNKNOWN
     Route: 048
     Dates: end: 2013

REACTIONS (6)
  - Neoplasm malignant [Fatal]
  - Hepatic cancer [Fatal]
  - Pulmonary fibrosis [Fatal]
  - Lung neoplasm malignant [Fatal]
  - Blood pressure fluctuation [Fatal]
  - Pneumonia [Recovered/Resolved]
